FAERS Safety Report 8511026-0 (Version None)
Quarter: 2012Q3

REPORT INFORMATION
  Report Type: 
  Country: None (occurrence: None)
  Receive Date: 20120703
  Receipt Date: 20120619
  Transmission Date: 20120928
  Serious: Yes (Hospitalization)
  Sender: FDA-Public Use
  Company Number: FK201201747

PATIENT
  Age: 48 Year
  Sex: Male

DRUGS (5)
  1. DOXORUBICIN HCL [Suspect]
     Indication: PRIMARY EFFUSION LYMPHOMA
  2. ETOPOSIDE [Suspect]
     Indication: PRIMARY EFFUSION LYMPHOMA
  3. CYCLOPHOSPHAMIDE [Suspect]
     Indication: PRIMARY EFFUSION LYMPHOMA
  4. PREDNISONE TAB [Suspect]
     Indication: PRIMARY EFFUSION LYMPHOMA
  5. ONCOVIN [Suspect]
     Indication: PRIMARY EFFUSION LYMPHOMA

REACTIONS (5)
  - LARGE INTESTINE PERFORATION [None]
  - SMALL INTESTINAL OBSTRUCTION [None]
  - ABDOMINAL PAIN UPPER [None]
  - EPIGASTRIC DISCOMFORT [None]
  - GASTROINTESTINAL NECROSIS [None]
